FAERS Safety Report 5694694-0 (Version None)
Quarter: 2008Q2

REPORT INFORMATION
  Report Type: 
  Country: None (occurrence: None)
  Receive Date: 20080404
  Receipt Date: 20080401
  Transmission Date: 20081010
  Serious: Yes (Other)
  Sender: FDA-Public Use
  Company Number: B0361694A

PATIENT
  Age: 33 Year
  Sex: Female

DRUGS (5)
  1. PAROXETINE HCL [Suspect]
     Route: 065
     Dates: start: 19990913
  2. PAROXETINE HCL [Suspect]
     Route: 048
  3. ESCITALOPRAM OXALATE [Concomitant]
     Route: 065
  4. DIAZEPAM [Concomitant]
     Dates: start: 20020527
  5. CIPRALEX [Concomitant]
     Dates: start: 20040521, end: 20070901

REACTIONS (22)
  - ABNORMAL DREAMS [None]
  - AGGRESSION [None]
  - AGORAPHOBIA [None]
  - ANXIETY [None]
  - COMMUNICATION DISORDER [None]
  - DIZZINESS [None]
  - DRUG WITHDRAWAL SYNDROME [None]
  - FATIGUE [None]
  - HEADACHE [None]
  - INFLUENZA LIKE ILLNESS [None]
  - INSOMNIA [None]
  - LIBIDO DECREASED [None]
  - MOOD ALTERED [None]
  - NASOPHARYNGITIS [None]
  - NAUSEA [None]
  - PANIC REACTION [None]
  - PARAESTHESIA [None]
  - PRURITUS [None]
  - SOMNOLENCE [None]
  - TREMOR [None]
  - WEIGHT INCREASED [None]
  - WITHDRAWAL SYNDROME [None]
